FAERS Safety Report 24281069 (Version 1)
Quarter: 2024Q3

REPORT INFORMATION
  Report Type: Spontaneous
  Country: US (occurrence: US)
  Receive Date: 20240904
  Receipt Date: 20240904
  Transmission Date: 20241016
  Serious: No
  Sender: BRISTOL MYERS SQUIBB
  Company Number: US-BRISTOL-MYERS SQUIBB COMPANY-2024-140641

PATIENT
  Sex: Female

DRUGS (8)
  1. ELIQUIS [Suspect]
     Active Substance: APIXABAN
     Indication: Atrial fibrillation
  2. CITRUS BERGAMOT SUPERFRUIT MEGA+O [Concomitant]
     Indication: Product used for unknown indication
  3. MINERALS\VITAMINS [Concomitant]
     Active Substance: MINERALS\VITAMINS
     Indication: Product used for unknown indication
  4. HERBALS\TURMERIC [Concomitant]
     Active Substance: HERBALS\TURMERIC
     Indication: Product used for unknown indication
  5. FISH OIL [Concomitant]
     Active Substance: FISH OIL
     Indication: Product used for unknown indication
  6. KRILL OIL [Concomitant]
     Active Substance: DIETARY SUPPLEMENT\KRILL OIL
     Indication: Product used for unknown indication
  7. MOSS [Concomitant]
     Indication: Product used for unknown indication
  8. ADPRO NEPHRO [Concomitant]
     Indication: Product used for unknown indication
     Dosage: 2400MCG VITAMIN A/75MCG VITAMIN D

REACTIONS (2)
  - Blood cholesterol [Recovering/Resolving]
  - Dry eye [Recovering/Resolving]
